FAERS Safety Report 9013411 (Version 2)
Quarter: 2013Q1

REPORT INFORMATION
  Report Type: Spontaneous
  Country: US (occurrence: US)
  Receive Date: 20130114
  Receipt Date: 20130305
  Transmission Date: 20140127
  Serious: Yes (Hospitalization, Other)
  Sender: FDA-Public Use
  Company Number: US-009507513-1109USA00517

PATIENT
  Sex: Female
  Weight: 73.48 kg

DRUGS (5)
  1. FOSAMAX [Suspect]
     Indication: OSTEOPOROSIS PROPHYLAXIS
     Dosage: 70 MG, QW
     Route: 048
     Dates: start: 2000
  2. FOSAMAX [Suspect]
     Indication: PROPHYLAXIS
  3. ALENDRONATE SODIUM [Suspect]
     Dosage: UNK
     Route: 048
     Dates: start: 2000
  4. ALENDRONATE SODIUM [Suspect]
     Dosage: 70 MG, QW
     Route: 048
     Dates: end: 201003
  5. VIACTIV SOFT CALCIUM CHEWS [Concomitant]
     Dosage: UNK
     Route: 048
     Dates: start: 20030520

REACTIONS (44)
  - Femur fracture [Unknown]
  - Hyperlipidaemia [Unknown]
  - Hypothyroidism [Unknown]
  - Myocardial infarction [Unknown]
  - Basal cell carcinoma [Unknown]
  - Diverticulum [Not Recovered/Not Resolved]
  - Diverticulitis [Not Recovered/Not Resolved]
  - Hypertension [Unknown]
  - Angina unstable [Unknown]
  - Ventricular tachycardia [Unknown]
  - Coronary artery disease [Unknown]
  - Cardiac failure congestive [Unknown]
  - Pulmonary oedema [Unknown]
  - Thrombophlebitis [Unknown]
  - Mitral valve incompetence [Unknown]
  - Chest pain [Unknown]
  - Sinus bradycardia [Unknown]
  - Arterial restenosis [Unknown]
  - Coronary artery stenosis [Unknown]
  - Diarrhoea [Unknown]
  - Depression [Not Recovered/Not Resolved]
  - Blood cholesterol increased [Unknown]
  - Tooth disorder [Unknown]
  - Calcium deficiency [Unknown]
  - Adverse drug reaction [Unknown]
  - Bladder disorder [Unknown]
  - Atrial fibrillation [Unknown]
  - Spondylolisthesis [Unknown]
  - Anxiety [Not Recovered/Not Resolved]
  - Haematoma [Unknown]
  - Groin pain [Unknown]
  - Spinal osteoarthritis [Unknown]
  - Foot fracture [Unknown]
  - Pseudomembranous colitis [Unknown]
  - Clostridium difficile infection [Unknown]
  - Venous thrombosis [Unknown]
  - Gait disturbance [Unknown]
  - Musculoskeletal discomfort [Unknown]
  - Arthralgia [Unknown]
  - Diarrhoea [Unknown]
  - Abdominal pain [Unknown]
  - Back pain [Not Recovered/Not Resolved]
  - Abdominal discomfort [Unknown]
  - Stress [Unknown]
